FAERS Safety Report 19613738 (Version 1)
Quarter: 2021Q3

REPORT INFORMATION
  Report Type: Spontaneous
  Country: US (occurrence: US)
  Receive Date: 20210727
  Receipt Date: 20210727
  Transmission Date: 20211014
  Serious: Yes (Other)
  Sender: FDA-Public Use
  Company Number: US-GLAXOSMITHKLINE-US2021GSK157549

PATIENT
  Sex: Male

DRUGS (14)
  1. ZANTAC [Suspect]
     Active Substance: RANITIDINE HYDROCHLORIDE
     Indication: INSOMNIA
     Dosage: UNK UNK, QD
     Route: 065
     Dates: start: 200201, end: 201312
  2. RANITIDINE. [Suspect]
     Active Substance: RANITIDINE
     Indication: MENTAL DISORDER
  3. RANITIDINE. [Suspect]
     Active Substance: RANITIDINE
     Indication: MENTAL DISORDER
  4. ZANTAC [Suspect]
     Active Substance: RANITIDINE HYDROCHLORIDE
     Indication: MENTAL DISORDER
  5. ZANTAC [Suspect]
     Active Substance: RANITIDINE HYDROCHLORIDE
     Indication: INSOMNIA
     Dosage: UNK UNK, QD
     Route: 065
     Dates: start: 200201, end: 201312
  6. ZANTAC [Suspect]
     Active Substance: RANITIDINE HYDROCHLORIDE
     Indication: MENTAL DISORDER
  7. RANITIDINE CAPSULE [Suspect]
     Active Substance: RANITIDINE
     Indication: MENTAL DISORDER
  8. RANITIDINE CAPSULE [Suspect]
     Active Substance: RANITIDINE
     Indication: INSOMNIA
     Dosage: UNK UNK, QD
     Route: 065
     Dates: start: 200201, end: 201312
  9. RANITIDINE. [Suspect]
     Active Substance: RANITIDINE
     Indication: INSOMNIA
     Dosage: UNK UNK, QD
     Route: 065
     Dates: start: 200201, end: 201312
  10. RANITIDINE. [Suspect]
     Active Substance: RANITIDINE
     Indication: INSOMNIA
     Dosage: UNK, QD
     Route: 065
     Dates: start: 200201, end: 201312
  11. RANITIDINE. [Suspect]
     Active Substance: RANITIDINE
     Indication: MENTAL DISORDER
  12. ZANTAC [Suspect]
     Active Substance: RANITIDINE HYDROCHLORIDE
     Indication: MENTAL DISORDER
  13. ZANTAC [Suspect]
     Active Substance: RANITIDINE HYDROCHLORIDE
     Indication: INSOMNIA
     Dosage: UNK UNK, QD
     Route: 065
     Dates: start: 200201, end: 201312
  14. RANITIDINE. [Suspect]
     Active Substance: RANITIDINE
     Indication: INSOMNIA
     Dosage: UNK, QD
     Route: 065
     Dates: start: 200201, end: 201312

REACTIONS (1)
  - Renal cancer [Unknown]
